FAERS Safety Report 9146773 (Version 4)
Quarter: 2018Q2

REPORT INFORMATION
  Report Type: Report from Study
  Country: JP (occurrence: JP)
  Receive Date: 20130307
  Receipt Date: 20180611
  Transmission Date: 20180711
  Serious: Yes (Hospitalization)
  Sender: FDA-Public Use
  Company Number: PHHY2013JP022156

PATIENT
  Age: 18 Year
  Sex: Male
  Weight: 28 kg

DRUGS (12)
  1. ILARIS [Suspect]
     Active Substance: CANAKINUMAB
     Indication: CHRONIC INFANTILE NEUROLOGICAL CUTANEOUS AND ARTICULAR SYNDROME
     Dosage: 55.6 MG, QD
     Route: 058
     Dates: start: 20120113, end: 20120113
  2. ALFAROL [Concomitant]
     Active Substance: ALFACALCIDOL
     Indication: CHRONIC INFANTILE NEUROLOGICAL CUTANEOUS AND ARTICULAR SYNDROME
     Dosage: 1 ML, QD
     Route: 048
  3. ILARIS [Suspect]
     Active Substance: CANAKINUMAB
     Dosage: 117 MG, QD
     Route: 058
     Dates: start: 20120608, end: 20120608
  4. PREDNISOLONE. [Concomitant]
     Active Substance: PREDNISOLONE
     Indication: CHRONIC INFANTILE NEUROLOGICAL CUTANEOUS AND ARTICULAR SYNDROME
     Dosage: UNK
     Route: 048
     Dates: end: 20120112
  5. PREDNISOLONE. [Concomitant]
     Active Substance: PREDNISOLONE
     Dosage: 0.3 G, QD
     Route: 048
     Dates: end: 20120612
  6. SELBEX [Concomitant]
     Active Substance: TEPRENONE
     Indication: CHRONIC INFANTILE NEUROLOGICAL CUTANEOUS AND ARTICULAR SYNDROME
     Dosage: 1 G, QD
     Route: 048
  7. ALLEGRA [Concomitant]
     Active Substance: FEXOFENADINE HYDROCHLORIDE
     Indication: RHINITIS ALLERGIC
     Dosage: 60 G, QD
     Route: 048
  8. ILARIS [Suspect]
     Active Substance: CANAKINUMAB
     Dosage: 150 MG, UNK
     Route: 058
  9. ILARIS [Suspect]
     Active Substance: CANAKINUMAB
     Dosage: 112 MG, QD
     Route: 058
     Dates: start: 20120309, end: 20120309
  10. ILARIS [Suspect]
     Active Substance: CANAKINUMAB
     Dosage: 115 MG, QD
     Route: 058
     Dates: start: 20120502, end: 20120502
  11. MEROPEN [Suspect]
     Active Substance: MEROPENEM
     Indication: PRODUCT USED FOR UNKNOWN INDICATION
     Dosage: 0.5 G, QD
     Route: 065
     Dates: start: 20120526, end: 20120526
  12. GASTER [Concomitant]
     Active Substance: FAMOTIDINE
     Indication: PROPHYLAXIS
     Dosage: 10 DF, QD
     Route: 048

REACTIONS (8)
  - C-reactive protein increased [Recovered/Resolved]
  - Rhinorrhoea [Recovered/Resolved]
  - Injection site pain [Recovered/Resolved]
  - Pharyngitis [Recovered/Resolved]
  - Oropharyngeal pain [Recovered/Resolved]
  - Anaphylactic reaction [Recovered/Resolved]
  - Urticaria [Unknown]
  - Headache [Recovering/Resolving]

NARRATIVE: CASE EVENT DATE: 201201
